FAERS Safety Report 11255674 (Version 1)
Quarter: 2015Q3

REPORT INFORMATION
  Report Type: Spontaneous
  Country: FI (occurrence: FI)
  Receive Date: 20150709
  Receipt Date: 20150709
  Transmission Date: 20151125
  Serious: Yes (Hospitalization)
  Sender: FDA-Public Use
  Company Number: FI-BAUSCH-BL-2015-016550

PATIENT
  Age: 19 Year
  Sex: Female
  Weight: 55 kg

DRUGS (2)
  1. VENLAFAXINE [Suspect]
     Active Substance: VENLAFAXINE HYDROCHLORIDE
     Indication: DEPRESSION
     Route: 065
  2. AMITRIPTYLINE [Suspect]
     Active Substance: AMITRIPTYLINE
     Indication: DEPRESSION
     Route: 065

REACTIONS (20)
  - Poisoning deliberate [Unknown]
  - Cardiac arrest [Unknown]
  - Incoherent [Unknown]
  - Loss of consciousness [Not Recovered/Not Resolved]
  - Delusion [Unknown]
  - Polyuria [Unknown]
  - Confusional state [Unknown]
  - Amnesia [Unknown]
  - Delirium [Recovering/Resolving]
  - Toxicity to various agents [Unknown]
  - Generalised tonic-clonic seizure [Recovered/Resolved]
  - Anxiety [Unknown]
  - Pupillary reflex impaired [Unknown]
  - Mydriasis [Not Recovered/Not Resolved]
  - Pulse absent [Unknown]
  - Blood glucose abnormal [Unknown]
  - Blood potassium decreased [Unknown]
  - Ventricular tachycardia [Unknown]
  - Pyrexia [Unknown]
  - Agitation [Unknown]
